FAERS Safety Report 7271469-2 (Version None)
Quarter: 2010Q4

REPORT INFORMATION
  Report Type: 
  Country: None (occurrence: None)
  Receive Date: 20101130
  Receipt Date: 20100618
  Transmission Date: 20110411
  Serious: Yes (Life-Threatening, Hospitalization)
  Sender: FDA-Public Use
  Company Number: 2010SP035160

PATIENT
  Age: 42 Year
  Sex: Female
  Weight: 59.8748 kg

DRUGS (6)
  1. NUVARING [Suspect]
     Indication: CONTRACEPTION
     Dosage: VAG
     Route: 067
     Dates: start: 20030601, end: 20050101
  2. NUVARING [Suspect]
     Indication: CONTRACEPTION
     Dosage: VAG
     Route: 067
     Dates: start: 20091129
  3. PROZAC [Concomitant]
  4. BONIVA [Concomitant]
  5. ZOVIRAX [Concomitant]
  6. PREVACID [Concomitant]

REACTIONS (1)
  - BREAST CANCER IN SITU [None]
